FAERS Safety Report 5088491-7 (Version None)
Quarter: 2006Q3

REPORT INFORMATION
  Report Type: 
  Country: None (occurrence: None)
  Receive Date: 20060823
  Receipt Date: 20060823
  Transmission Date: 20061208
  Serious: Yes (Other)
  Sender: FDA-Public Use
  Company Number: None

PATIENT
  Age: 24 Year
  Sex: Female
  Weight: 56.6996 kg

DRUGS (3)
  1. LUPRON DEPOT [Suspect]
     Indication: ENDOMETRIOSIS
     Dosage: 3.75 MG 1 SHOT PER/MO  INJECTION
     Dates: start: 20040518, end: 20041227
  2. LUPRON DEPOT [Suspect]
     Indication: ENDOMETRIOSIS
     Dosage: 11.25 MG 1 SHOT PER 3 MOS INJECTION
     Dates: start: 20040518, end: 20041227
  3. LUPRON DEPOT [Suspect]

REACTIONS (6)
  - AMNESIA [None]
  - BONE PAIN [None]
  - HEADACHE [None]
  - HOT FLUSH [None]
  - NIGHT SWEATS [None]
  - OSTEOPENIA [None]
